FAERS Safety Report 6248948-X (Version None)
Quarter: 2009Q2

REPORT INFORMATION
  Report Type: 
  Country: None (occurrence: None)
  Receive Date: 20090629
  Receipt Date: 20090617
  Transmission Date: 20091009
  Serious: Yes (Hospitalization, Other)
  Sender: FDA-Public Use
  Company Number: US-ELI_LILLY_AND_COMPANY-US200906005299

PATIENT
  Sex: Male

DRUGS (3)
  1. PROZAC [Suspect]
     Dosage: UNK, UNKNOWN
     Route: 065
     Dates: start: 20090310
  2. BETASERON /05983301/ [Concomitant]
     Indication: MULTIPLE SCLEROSIS
     Dosage: 8 MIU, QOD
     Route: 058
     Dates: start: 20070606
  3. EFFEXOR [Concomitant]

REACTIONS (5)
  - CRYING [None]
  - DYSKINESIA [None]
  - MOVEMENT DISORDER [None]
  - PARANOIA [None]
  - SYNCOPE [None]
